FAERS Safety Report 13740342 (Version 2)
Quarter: 2017Q3

REPORT INFORMATION
  Report Type: Report from Study
  Country: CL (occurrence: CL)
  Receive Date: 20170711
  Receipt Date: 20170724
  Transmission Date: 20171127
  Serious: Yes (Other)
  Sender: FDA-Public Use
  Company Number: PHHY2017CL096333

PATIENT
  Sex: Male

DRUGS (3)
  1. OMNITROPE [Suspect]
     Active Substance: SOMATROPIN
     Indication: GROWTH RETARDATION
     Dosage: 4 IU, QD
     Route: 058
     Dates: start: 20150701
  2. LOSARTAN. [Suspect]
     Active Substance: LOSARTAN
     Indication: PROPHYLAXIS
     Route: 065
  3. XUZAL [Concomitant]
     Active Substance: LEVOCETIRIZINE
     Indication: HYPERSENSITIVITY
     Dosage: 5 MG, UNK
     Route: 065

REACTIONS (1)
  - Spondylolisthesis [Unknown]
